FAERS Safety Report 13793536 (Version 2)
Quarter: 2017Q3

REPORT INFORMATION
  Report Type: Report from Study
  Country: CA (occurrence: CA)
  Receive Date: 20170726
  Receipt Date: 20170828
  Transmission Date: 20171127
  Serious: Yes (Hospitalization)
  Sender: FDA-Public Use
  Company Number: CA-ROCHE-1952597

PATIENT
  Age: 80 Year
  Sex: Male

DRUGS (12)
  1. ESBRIET [Suspect]
     Active Substance: PIRFENIDONE
     Dosage: 2 CAPSULES
     Route: 048
     Dates: start: 20170616, end: 2017
  2. TAMSULOSIN [Concomitant]
     Active Substance: TAMSULOSIN
  3. OMEPRAZOLE. [Concomitant]
     Active Substance: OMEPRAZOLE
  4. FERROUS FUMARATE [Concomitant]
     Active Substance: FERROUS FUMARATE
  5. SYMBICORT [Concomitant]
     Active Substance: BUDESONIDE\FORMOTEROL FUMARATE DIHYDRATE
  6. ESBRIET [Suspect]
     Active Substance: PIRFENIDONE
     Indication: IDIOPATHIC PULMONARY FIBROSIS
     Route: 048
     Dates: start: 20170609
  7. MISOPROSTOL. [Concomitant]
     Active Substance: MISOPROSTOL
  8. CHOLECALCIFEROL [Concomitant]
     Active Substance: CHOLECALCIFEROL
  9. QUINAPRIL. [Concomitant]
     Active Substance: QUINAPRIL
  10. DOXEPIN [Concomitant]
     Active Substance: DOXEPIN
  11. DOMPERIDONE [Concomitant]
     Active Substance: DOMPERIDONE
  12. SPIRIVA [Concomitant]
     Active Substance: TIOTROPIUM BROMIDE MONOHYDRATE

REACTIONS (3)
  - Asthenia [Recovering/Resolving]
  - Drug hypersensitivity [Recovering/Resolving]
  - Diarrhoea [Recovered/Resolved]

NARRATIVE: CASE EVENT DATE: 20170616
